FAERS Safety Report 23573967 (Version 2)
Quarter: 2024Q1

REPORT INFORMATION
  Report Type: Spontaneous
  Country: US (occurrence: US)
  Receive Date: 20240228
  Receipt Date: 20240313
  Transmission Date: 20240409
  Serious: Yes (Other)
  Sender: FDA-Public Use
  Company Number: US-UPSHER-SMITH LABORATORIES, LLC-2024USL00180

PATIENT
  Sex: Male

DRUGS (1)
  1. ISOTRETINOIN [Suspect]
     Active Substance: ISOTRETINOIN
     Indication: Acne cystic
     Dosage: 40 MG, 1X/DAY
     Route: 048
     Dates: start: 20240131, end: 20240213

REACTIONS (3)
  - Mood swings [Recovered/Resolved]
  - Irritability [Recovered/Resolved]
  - Anger [Recovered/Resolved]

NARRATIVE: CASE EVENT DATE: 20240101
